FAERS Safety Report 20143820 (Version 3)
Quarter: 2022Q1

REPORT INFORMATION
  Report Type: Spontaneous
  Country: FR (occurrence: FR)
  Receive Date: 20211203
  Receipt Date: 20220212
  Transmission Date: 20220423
  Serious: Yes (Death, Hospitalization)
  Sender: FDA-Public Use
  Company Number: None

PATIENT
  Age: 62 Year
  Sex: Male
  Weight: 71 kg

DRUGS (9)
  1. VENETOCLAX [Suspect]
     Active Substance: VENETOCLAX
     Indication: Plasma cell myeloma
     Route: 048
     Dates: start: 20210922, end: 20211116
  2. KETOCONAZOLE [Suspect]
     Active Substance: KETOCONAZOLE
     Indication: Potentiating drug interaction
     Dosage: COMPRESSED,400 MG/DAY
     Route: 048
     Dates: start: 20211020, end: 20211116
  3. ACETAMINOPHEN [Suspect]
     Active Substance: ACETAMINOPHEN
     Indication: Pyrexia
     Dosage: MAX 4G/J
     Route: 048
     Dates: start: 20211114, end: 20211116
  4. BACTRIM [Concomitant]
     Active Substance: SULFAMETHOXAZOLE\TRIMETHOPRIM
     Indication: Product used for unknown indication
     Dosage: COMPRESSED, 3 TIMES PER WEEK
     Dates: start: 2017
  5. POMALIDOMIDE [Concomitant]
     Active Substance: POMALIDOMIDE
     Indication: Product used for unknown indication
  6. XARELTO [Concomitant]
     Active Substance: RIVAROXABAN
     Indication: Product used for unknown indication
     Dosage: 10 MG/DAY
     Dates: start: 2017
  7. VALACYCLOVIR HYDROCHLORIDE [Concomitant]
     Active Substance: VALACYCLOVIR HYDROCHLORIDE
     Indication: Product used for unknown indication
     Dosage: 500 MG/DAY
     Dates: start: 2017
  8. ISATUXIMAB [Concomitant]
     Active Substance: ISATUXIMAB
     Indication: Product used for unknown indication
  9. DEXAMETHASONE [Concomitant]
     Active Substance: DEXAMETHASONE
     Indication: Product used for unknown indication

REACTIONS (19)
  - Hepatitis fulminant [Fatal]
  - Cardio-respiratory arrest [Fatal]
  - Neutropenia [Unknown]
  - Bone pain [Unknown]
  - Diarrhoea [Unknown]
  - Pyrexia [Unknown]
  - Puncture site haemorrhage [Unknown]
  - Haematoma [Unknown]
  - Cholestasis [Unknown]
  - Hepatic failure [Unknown]
  - Acute kidney injury [Unknown]
  - Leukopenia [Unknown]
  - Thrombocytopenia [Unknown]
  - Hepatic cytolysis [Unknown]
  - Febrile bone marrow aplasia [Unknown]
  - Pleural effusion [Unknown]
  - Haemoperitoneum [Unknown]
  - Lung consolidation [Unknown]
  - Adenovirus infection [Unknown]

NARRATIVE: CASE EVENT DATE: 20210101
